FAERS Safety Report 6838310-0 (Version None)
Quarter: 2010Q3

REPORT INFORMATION
  Report Type: 
  Country: None (occurrence: None)
  Receive Date: 20100713
  Receipt Date: 20070604
  Transmission Date: 20110219
  Serious: No
  Sender: FDA-Public Use
  Company Number: US-PFIZER INC-2007047027

PATIENT
  Sex: Female
  Weight: 104 kg

DRUGS (6)
  1. CHANTIX [Suspect]
     Indication: SMOKING CESSATION THERAPY
     Route: 048
     Dates: start: 20070528, end: 20070602
  2. ALL OTHER THERAPEUTIC PRODUCTS [Concomitant]
  3. PROZAC [Concomitant]
  4. CYMBALTA [Concomitant]
  5. REGLAN [Concomitant]
  6. FIORICET [Concomitant]
     Indication: MIGRAINE

REACTIONS (1)
  - MIGRAINE [None]
